FAERS Safety Report 6472164-X (Version None)
Quarter: 2009Q4

REPORT INFORMATION
  Report Type: 
  Country: None (occurrence: None)
  Receive Date: 20091203
  Receipt Date: 20091127
  Transmission Date: 20100525
  Serious: Yes (Disabling, Other)
  Sender: FDA-Public Use
  Company Number: JP-ABBOTT-09P-087-0599868-00

PATIENT
  Sex: Female
  Weight: 48 kg

DRUGS (13)
  1. SEVOFLURANE [Suspect]
     Indication: GENERAL ANAESTHESIA
     Dosage: 1.2 - 1.5%
     Route: 055
     Dates: start: 20090325, end: 20090325
  2. PHENYTOIN [Suspect]
     Indication: EPILEPSY
     Route: 048
     Dates: start: 20050101
  3. PHENYTOIN [Suspect]
  4. BEPOTASTINE BESILATE [Suspect]
     Indication: DRUG USE FOR UNKNOWN INDICATION
     Route: 048
  5. PROPOFOL [Concomitant]
     Indication: INDUCTION OF ANAESTHESIA
     Route: 042
     Dates: start: 20090325, end: 20090325
  6. FENTANYL [Concomitant]
     Indication: INDUCTION OF ANAESTHESIA
     Route: 065
  7. ROCURONIUM BROMIDE [Concomitant]
     Indication: ENDOTRACHEAL INTUBATION
     Route: 042
  8. OXYGEN [Concomitant]
     Indication: MAINTENANCE OF ANAESTHESIA
     Route: 055
  9. REMIFENTANIL [Concomitant]
     Indication: MAINTENANCE OF ANAESTHESIA
     Dosage: 0.1 - 0.2 MCG/KG/MIN
     Route: 042
  10. DIPRIVAN [Concomitant]
     Indication: ANAESTHESIA
     Dosage: 2 MCG/ML
     Route: 042
     Dates: start: 20090325, end: 20090325
  11. HYDANTOL [Concomitant]
     Indication: CONVULSION PROPHYLAXIS
     Route: 048
     Dates: start: 20050101
  12. EPHEDRINE HYDROCHLORIDE [Concomitant]
     Indication: DRUG USE FOR UNKNOWN INDICATION
     Route: 042
     Dates: start: 20090325, end: 20090325
  13. LIDOCAINE [Concomitant]
     Indication: DRUG USE FOR UNKNOWN INDICATION
     Route: 042
     Dates: start: 20090325, end: 20090325

REACTIONS (1)
  - EPILEPSY [None]
